FAERS Safety Report 18238780 (Version 2)
Quarter: 2020Q3

REPORT INFORMATION
  Report Type: Spontaneous
  Country: US (occurrence: US)
  Receive Date: 20200907
  Receipt Date: 20200915
  Transmission Date: 20201103
  Serious: Yes (Hospitalization)
  Sender: FDA-Public Use
  Company Number: US-JNJFOC-A-US2020-201626

PATIENT
  Age: 30 Year
  Sex: Male
  Weight: 146.64 kg

DRUGS (5)
  1. SILDENAFIL CITRATE. [Concomitant]
     Active Substance: SILDENAFIL CITRATE
  2. VELETRI [Suspect]
     Active Substance: EPOPROSTENOL
     Indication: PULMONARY ARTERIAL HYPERTENSION
     Dosage: 30 NG/KG, PER MIN
     Route: 042
  3. VELETRI [Suspect]
     Active Substance: EPOPROSTENOL
     Dosage: 0.5 MG
     Route: 042
  4. VELETRI [Suspect]
     Active Substance: EPOPROSTENOL
     Dosage: 4 NG/KG, PER MIN
     Route: 042
  5. VELETRI [Suspect]
     Active Substance: EPOPROSTENOL
     Dosage: 26 NG/KG, PER MIN
     Route: 042

REACTIONS (12)
  - Device dislocation [Recovered/Resolved]
  - Diarrhoea [Unknown]
  - Nasal congestion [Unknown]
  - Pain in jaw [Unknown]
  - Nausea [Unknown]
  - Malaise [Unknown]
  - Unevaluable event [Unknown]
  - Catheter management [Unknown]
  - Catheter site infection [Unknown]
  - Dyspnoea [Unknown]
  - Dermatitis contact [Unknown]
  - Gastrooesophageal reflux disease [Unknown]

NARRATIVE: CASE EVENT DATE: 20200731
